FAERS Safety Report 10036438 (Version 1)
Quarter: 2014Q1

REPORT INFORMATION
  Report Type: Spontaneous
  Country: NL (occurrence: NL)
  Receive Date: 20140325
  Receipt Date: 20140325
  Transmission Date: 20141002
  Serious: Yes (Death, Hospitalization)
  Sender: FDA-Public Use
  Company Number: NL-MYLANLABS-2014S1005748

PATIENT
  Age: 33 Year
  Sex: Male

DRUGS (1)
  1. RISPERIDONE [Suspect]
     Indication: SCHIZOPHRENIA

REACTIONS (5)
  - Inappropriate antidiuretic hormone secretion [Fatal]
  - Polydipsia psychogenic [Unknown]
  - Hyponatraemia [Fatal]
  - Brain oedema [Fatal]
  - Convulsion [Unknown]
